FAERS Safety Report 9455780 (Version 1)
Quarter: 2013Q3

REPORT INFORMATION
  Report Type: Spontaneous
  Country: US (occurrence: US)
  Receive Date: 20130813
  Receipt Date: 20130813
  Transmission Date: 20140515
  Serious: Yes (Disabling)
  Sender: FDA-Public Use
  Company Number: US-JNJFOC-20130714500

PATIENT
  Age: 65 Year
  Sex: Female
  Weight: 53.52 kg

DRUGS (22)
  1. REMICADE [Suspect]
     Indication: CROHN^S DISEASE
     Route: 042
     Dates: end: 20130326
  2. REMICADE [Suspect]
     Indication: CROHN^S DISEASE
     Route: 042
     Dates: start: 1998
  3. ERGOCALCIFEROL [Concomitant]
     Indication: HYPOVITAMINOSIS
     Route: 065
  4. OMEPRAZOLE [Concomitant]
     Indication: OESOPHAGITIS
     Route: 048
     Dates: start: 20130503
  5. B 12 [Concomitant]
     Indication: HYPOVITAMINOSIS
     Route: 030
     Dates: start: 20121227
  6. AZULFIDINE [Concomitant]
     Route: 065
  7. MECLIZINE [Concomitant]
     Route: 065
  8. SYNTHROID [Concomitant]
     Indication: HYPOTHYROIDISM
     Route: 048
     Dates: start: 20120806
  9. PROMETHAZINE [Concomitant]
     Dosage: 25
     Route: 065
  10. CIPRO [Concomitant]
     Dosage: 500
     Route: 065
  11. MAGNESIUM OXIDE [Concomitant]
     Route: 065
  12. CALCIUM [Concomitant]
     Route: 048
     Dates: start: 20070629
  13. POTASSIUM CHLORIDE [Concomitant]
     Route: 065
  14. XIFAXAN [Concomitant]
     Route: 065
  15. FERRIC SULFATE [Concomitant]
     Dosage: 150
     Route: 065
  16. FISH OIL [Concomitant]
     Route: 065
  17. AMBIEN [Concomitant]
     Indication: SLEEP DISORDER
     Route: 065
     Dates: start: 20070629
  18. CYMBALTA [Concomitant]
     Indication: DEPRESSION
     Route: 065
     Dates: start: 20120806
  19. LOPID [Concomitant]
     Indication: HYPERLIPIDAEMIA
     Route: 048
     Dates: start: 20070629
  20. VITAMIN D [Concomitant]
     Indication: HYPOVITAMINOSIS
     Dosage: 5000 IU FOR TWICE WEEKLY
     Route: 065
  21. KLOR-CON [Concomitant]
     Route: 065
     Dates: start: 20120806
  22. FERREX [Concomitant]
     Route: 048
     Dates: start: 20070129

REACTIONS (1)
  - Herpes zoster [Recovering/Resolving]
